FAERS Safety Report 8285812 (Version 2)
Quarter: 2012Q4

REPORT INFORMATION
  Report Type: Report from Study
  Country: JP (occurrence: JP)
  Receive Date: 20111213
  Receipt Date: 20121123
  Transmission Date: 20130627
  Serious: Yes (Other)
  Sender: FDA-Public Use
  Company Number: PHHY2011JP107260

PATIENT
  Sex: Male
  Weight: 80 kg

DRUGS (6)
  1. CO-DIOVAN [Suspect]
     Indication: HYPERTENSION
     Dosage: 1 DF, QD
     Route: 048
     Dates: start: 20100406, end: 20120119
  2. EXFORGE [Concomitant]
     Indication: HYPERTENSION
     Dosage: 1 DF, UNK
     Route: 048
     Dates: start: 20101119, end: 20111118
  3. AMLODIN [Concomitant]
     Indication: HYPERTENSION
     Dosage: 5 mg, UNK
     Route: 048
     Dates: start: 20070602, end: 20101217
  4. EPLERENONE [Concomitant]
     Indication: HYPERTENSION
     Dosage: 25 mg, UNK
     Route: 048
     Dates: start: 20110119, end: 20111118
  5. LIPIDIL [Concomitant]
     Indication: HYPERTENSION
     Dosage: 100 mg, UNK
     Route: 048
     Dates: start: 20100915, end: 20111118
  6. ALOSITOL [Concomitant]
     Indication: HYPERTENSION
     Dosage: 3 DF, UNK
     Route: 048
     Dates: start: 20101217, end: 20111118

REACTIONS (1)
  - Cardiac failure [Unknown]
